FAERS Safety Report 17305801 (Version 1)
Quarter: 2020Q1

REPORT INFORMATION
  Report Type: Spontaneous
  Country: US (occurrence: US)
  Receive Date: 20200123
  Receipt Date: 20200123
  Transmission Date: 20200409
  Serious: No
  Sender: FDA-Public Use
  Company Number: US-AMGEN-USASP2020009258

PATIENT
  Sex: Male

DRUGS (1)
  1. REPATHA [Suspect]
     Active Substance: EVOLOCUMAB
     Indication: ESSENTIAL HYPERTENSION
     Dosage: 420 MILLIGRAM, (420MG 3.51VIL INJ) QMO
     Route: 058

REACTIONS (3)
  - Rash macular [Recovered/Resolved]
  - Off label use [Unknown]
  - Night sweats [Recovered/Resolved]
